FAERS Safety Report 7874420-7 (Version None)
Quarter: 2011Q4

REPORT INFORMATION
  Report Type: 
  Country: None (occurrence: None)
  Receive Date: 20111030
  Receipt Date: 20110519
  Transmission Date: 20120403
  Serious: No
  Sender: FDA-Public Use
  Company Number: US-AMGEN-USASP2011026091

PATIENT
  Age: 58 Year
  Sex: Female
  Weight: 63.492 kg

DRUGS (7)
  1. MULTIVITAMIN                       /00097801/ [Concomitant]
     Route: 048
  2. VITAMIN C                          /00008001/ [Concomitant]
     Dosage: 100 MG, UNK
     Route: 048
  3. CALCIUM [Concomitant]
     Route: 048
  4. ENBREL [Suspect]
     Indication: PRODUCT USED FOR UNKNOWN INDICATION
     Dosage: 50 MG, QWK
     Route: 058
  5. FISH OIL [Concomitant]
     Route: 048
  6. CO Q-10 [Concomitant]
     Route: 048
  7. NIACIN [Concomitant]
     Dosage: 125 MG, UNK
     Route: 048

REACTIONS (4)
  - PALPITATIONS [None]
  - COUGH [None]
  - DYSPNOEA [None]
  - EPISTAXIS [None]
